FAERS Safety Report 14994859 (Version 1)
Quarter: 2018Q2

REPORT INFORMATION
  Report Type: Spontaneous
  Country: US (occurrence: US)
  Receive Date: 20180611
  Receipt Date: 20180611
  Transmission Date: 20180711
  Serious: No
  Sender: FDA-Public Use
  Company Number: US-PFIZER INC-2018235379

PATIENT
  Age: 77 Year
  Sex: Female
  Weight: 81.19 kg

DRUGS (2)
  1. ZOMETA IV [Concomitant]
     Indication: CALCIUM IONISED INCREASED
     Dosage: UNK
  2. IBRANCE [Suspect]
     Active Substance: PALBOCICLIB
     Indication: BREAST CANCER METASTATIC
     Dosage: 125MG ONCE A DAY FOR THREE WEEKS ON AND ONE OFF
     Route: 048

REACTIONS (1)
  - White blood cell count decreased [Recovering/Resolving]
